FAERS Safety Report 17911416 (Version 1)
Quarter: 2020Q2

REPORT INFORMATION
  Report Type: Spontaneous
  Country: DE (occurrence: DE)
  Receive Date: 20200618
  Receipt Date: 20200618
  Transmission Date: 20200714
  Serious: Yes (Hospitalization)
  Sender: FDA-Public Use
  Company Number: DE-ACCORD-185618

PATIENT
  Age: 78 Year
  Weight: 43 kg

DRUGS (8)
  1. PANTOPRAZOLE [Concomitant]
     Active Substance: PANTOPRAZOLE
     Dosage: 40 MG, 1-0-0-0
  2. HYDROMORPHONE/HYDROMORPHONE HYDROCHLORIDE [Concomitant]
     Active Substance: HYDROMORPHONE
     Dosage: 8 MG, 1-0-1-0,
  3. PACLITAXEL/PACLITAXEL LIPOSOME [Suspect]
     Active Substance: PACLITAXEL
     Indication: PRODUCT USED FOR UNKNOWN INDICATION
     Dosage: SINCE 08012020 1ST CYCLE
     Dates: start: 20200108
  4. PEMBROLIZUMAB. [Suspect]
     Active Substance: PEMBROLIZUMAB
     Indication: PRODUCT USED FOR UNKNOWN INDICATION
     Dosage: SINCE 08012020 1ST CYCLE
     Dates: start: 20200108
  5. CARBOPLATIN. [Suspect]
     Active Substance: CARBOPLATIN
     Indication: PRODUCT USED FOR UNKNOWN INDICATION
     Dosage: SINCE 08012020 1ST CYCLE
     Dates: start: 20200108
  6. MOVICOL SACHETS [Concomitant]
     Dosage: 1-0-0-0
  7. METOCLOPRAMIDE. [Concomitant]
     Active Substance: METOCLOPRAMIDE
     Dosage: 10 MG, 1-1-1-0
  8. FERRO SANOL COMP [Concomitant]
     Dosage: 1-0-0-0, 30MG / 0.5MG / 2.5UG

REACTIONS (7)
  - General physical health deterioration [Unknown]
  - Haemoptysis [Unknown]
  - Cachexia [Unknown]
  - Dysphagia [Unknown]
  - Pyrexia [Unknown]
  - Decreased appetite [Unknown]
  - Constipation [Unknown]
